FAERS Safety Report 9975862 (Version 1)
Quarter: 2014Q1

REPORT INFORMATION
  Report Type: Spontaneous
  Country: CA (occurrence: CA)
  Receive Date: 20140306
  Receipt Date: 20140306
  Transmission Date: 20141002
  Serious: Yes (Death, Hospitalization, Other)
  Sender: FDA-Public Use
  Company Number: CA-TEVA-466700USA

PATIENT
  Age: 76 Year
  Sex: Female
  Weight: 86.4 kg

DRUGS (10)
  1. TREANDA [Suspect]
     Indication: B-CELL LYMPHOMA
     Dosage: 190 MG DAILY
     Route: 042
     Dates: start: 20131216, end: 20131217
  2. ALLOPURINOL [Suspect]
     Indication: PROPHYLAXIS
     Dosage: 300 MILLIGRAM DAILY;
     Dates: start: 20131217, end: 20131226
  3. SEPTRA DS [Suspect]
     Indication: ANTIFUNGAL PROPHYLAXIS
     Dosage: 800/160 MG ON MON, FRI, WED
     Dates: start: 20131217, end: 20131230
  4. METOCLOPRAMIDE [Concomitant]
     Indication: NAUSEA
     Dosage: 40 MILLIGRAM DAILY; AS NEEDED
     Route: 048
  5. DEXAMETHASONE [Concomitant]
     Indication: NAUSEA
     Dosage: DAYS 1-4 OF CHEMOTHERAPY
  6. ONDANSETRON [Concomitant]
     Route: 048
     Dates: start: 20131216, end: 20131217
  7. LORAZEPAM [Concomitant]
     Dosage: AS NEEDED
     Route: 048
  8. ZOPICLONE [Concomitant]
     Dosage: AS NEEDED
     Route: 048
  9. RABEPRAZOLE [Concomitant]
     Dosage: 20 MILLIGRAM DAILY;
     Route: 048
  10. VITAMIN D [Concomitant]
     Dosage: DAILY

REACTIONS (2)
  - Stevens-Johnson syndrome [Fatal]
  - Febrile neutropenia [Fatal]
